FAERS Safety Report 23188247 (Version 9)
Quarter: 2024Q4

REPORT INFORMATION
  Report Type: Spontaneous
  Country: US (occurrence: US)
  Receive Date: 20231115
  Receipt Date: 20241118
  Transmission Date: 20250115
  Serious: No
  Sender: PFIZER
  Company Number: US-PFIZER INC-PV202300184104

PATIENT
  Age: 85 Year
  Sex: Female
  Weight: 66.22 kg

DRUGS (6)
  1. IBRANCE [Suspect]
     Active Substance: PALBOCICLIB
     Indication: Lung neoplasm malignant
     Dosage: 100 MG
  2. IBRANCE [Suspect]
     Active Substance: PALBOCICLIB
     Dosage: 75 MG ONCE DAILY, 21 DAYS ON AND THEN 7 DAYS OFF
     Route: 048
     Dates: end: 20240507
  3. IBRANCE [Suspect]
     Active Substance: PALBOCICLIB
     Dosage: 75 MG ONCE DAILY, 21 DAYS ON AND THEN 7 DAYS OFF
     Route: 048
     Dates: start: 20240614
  4. AMLODIPINE [Concomitant]
     Active Substance: AMLODIPINE BESYLATE
     Indication: Hypertension
     Dosage: 5 MG, 1X/DAY (1 TABLET A DAY)
  5. ATENOLOL [Concomitant]
     Active Substance: ATENOLOL
     Dosage: 25 MG, 1X/DAY (ONE TIME A DAY)
  6. KLOR-CON M10 [Concomitant]
     Active Substance: POTASSIUM CHLORIDE
     Dosage: 20 MG, 1X/DAY (ONCE A DAY, 2 TABLETS)

REACTIONS (3)
  - Abscess [Unknown]
  - White blood cell count decreased [Unknown]
  - Off label use [Unknown]
